FAERS Safety Report 8018929-4 (Version None)
Quarter: 2012Q1

REPORT INFORMATION
  Report Type: 
  Country: None (occurrence: None)
  Receive Date: 20120103
  Receipt Date: 20111228
  Transmission Date: 20120608
  Serious: Yes (Hospitalization)
  Sender: FDA-Public Use
  Company Number: US-BAYER-2012-000032

PATIENT
  Age: 19 Year
  Sex: Female

DRUGS (6)
  1. EXCEDRIN (MIGRAINE) [Concomitant]
     Dosage: UNK
     Dates: start: 19980101
  2. DARVOCET [Concomitant]
     Dosage: UNK
     Route: 048
     Dates: start: 20040401
  3. VITAMIN C [Concomitant]
     Dosage: UNK
     Dates: start: 19950101
  4. ACETAMINOPHEN [Concomitant]
     Dosage: UNK
     Dates: start: 19980101
  5. YASMIN [Suspect]
     Indication: CONTRACEPTION
     Dosage: UNK
     Dates: start: 20010101, end: 20070101
  6. NSAID'S [Concomitant]
     Dosage: UNK
     Dates: start: 19980101

REACTIONS (5)
  - BLOOD URINE PRESENT [None]
  - BACK PAIN [None]
  - DEPRESSION [None]
  - CHOLECYSTITIS ACUTE [None]
  - ABDOMINAL PAIN [None]
